FAERS Safety Report 10055776 (Version 1)
Quarter: 2014Q2

REPORT INFORMATION
  Report Type: Spontaneous
  Country: US (occurrence: None)
  Receive Date: 20140402
  Receipt Date: 20140402
  Transmission Date: 20141212
  Serious: Yes (Other)
  Sender: FDA-Public Use
  Company Number: None

PATIENT
  Age: 40 Year
  Sex: Female
  Weight: 61.8 kg

DRUGS (1)
  1. ACETAZOLAMIDE [Suspect]
     Indication: INTRACRANIAL PRESSURE INCREASED
     Route: 048
     Dates: start: 20140304

REACTIONS (6)
  - Malaise [None]
  - Headache [None]
  - Tinnitus [None]
  - Vision blurred [None]
  - Drug dose omission [None]
  - Product substitution issue [None]
